FAERS Safety Report 8337684-1 (Version None)
Quarter: 2012Q2

REPORT INFORMATION
  Report Type: 
  Country: None (occurrence: None)
  Receive Date: 20120504
  Receipt Date: 20120423
  Transmission Date: 20120825
  Serious: Yes (Death)
  Sender: FDA-Public Use
  Company Number: IE-JNJFOC-20120405457

PATIENT
  Age: 56 Year
  Sex: Male
  Weight: 143 kg

DRUGS (3)
  1. XARELTO [Suspect]
     Indication: KNEE ARTHROPLASTY
     Route: 048
  2. XARELTO [Suspect]
     Indication: THROMBOSIS PROPHYLAXIS
     Route: 048
  3. ENOXAPARIN SODIUM [Concomitant]

REACTIONS (2)
  - CIRCULATORY COLLAPSE [None]
  - PULMONARY EMBOLISM [None]
